FAERS Safety Report 5969709-2 (Version None)
Quarter: 2008Q4

REPORT INFORMATION
  Report Type: 
  Country: None (occurrence: None)
  Receive Date: 20081126
  Receipt Date: 20081117
  Transmission Date: 20090506
  Serious: Yes (Other)
  Sender: FDA-Public Use
  Company Number: US-PFIZER INC-2008088069

PATIENT
  Sex: Female

DRUGS (2)
  1. CHANTIX [Suspect]
  2. SSRI [Concomitant]
     Indication: DEPRESSION

REACTIONS (2)
  - DEREALISATION [None]
  - MENTAL DISORDER [None]
